FAERS Safety Report 24395111 (Version 1)
Quarter: 2024Q4

REPORT INFORMATION
  Report Type: Other
  Country: PL (occurrence: PL)
  Receive Date: 20241004
  Receipt Date: 20241004
  Transmission Date: 20250115
  Serious: Yes (Other)
  Sender: CHIESI
  Company Number: None

PATIENT
  Age: 3 Day
  Sex: Male

DRUGS (2)
  1. CUROSURF [Suspect]
     Active Substance: PORACTANT ALFA
     Indication: Product used for unknown indication
     Dosage: UNK
  2. KETAMINE HYDROCHLORIDE [Suspect]
     Active Substance: KETAMINE HYDROCHLORIDE
     Indication: Product used for unknown indication
     Dosage: UNK
     Dates: start: 20230321, end: 20230321

REACTIONS (2)
  - Oxygen consumption increased [Unknown]
  - Respiratory depression [Unknown]

NARRATIVE: CASE EVENT DATE: 20230321
